FAERS Safety Report 9905547 (Version 1)
Quarter: 2013Q2

REPORT INFORMATION
  Report Type: Spontaneous
  Country: US (occurrence: None)
  Receive Date: 20130305
  Receipt Date: 20130305
  Transmission Date: 20140414
  Serious: Yes (Other)
  Sender: FDA-Public Use
  Company Number: 163-21880-12041666

PATIENT
  Age: 65 Year
  Sex: Male
  Weight: 102.06 kg

DRUGS (4)
  1. REVLIMID (LENALIDOMIDE) (25 MILLIGRAM , CAPSULES) [Suspect]
     Dosage: 25 MG, DAILY X 21 DAYS, PO OCT/2007 - UNKNOWN
     Dates: start: 200710
  2. ACYCLOVIR (ACICLOVIR) (ACICLOVIR) [Concomitant]
  3. VICODIN (VICODIN) [Concomitant]
  4. AMBIEN (ZOLPIDEM TARTRATE) [Concomitant]

REACTIONS (1)
  - Renal impairment [None]
